FAERS Safety Report 4380056-5 (Version None)
Quarter: 2004Q2

REPORT INFORMATION
  Report Type: 
  Country: None (occurrence: None)
  Receive Date: 20040617
  Receipt Date: 20040614
  Transmission Date: 20050107
  Serious: Yes (Hospitalization)
  Sender: FDA-Public Use
  Company Number: FR-MERCK-0406FRA00056

PATIENT
  Age: 83 Year
  Sex: Male

DRUGS (9)
  1. SACCHAROMYCES BOULARDII (AS DRUG) [Concomitant]
     Route: 048
  2. BENFLUOREX HYDROCHLORIDE [Concomitant]
     Route: 048
  3. CANDESARTAN CILEXETIL AND HYDROCHLOROTHIAZIDE [Suspect]
     Indication: HYPERTENSION
     Route: 048
  4. NIFEDIPINE [Suspect]
     Indication: HYPERTENSION
     Route: 048
  5. NOROXIN [Suspect]
     Indication: URINARY TRACT INFECTION
     Route: 048
     Dates: start: 20040215, end: 20040229
  6. PRAVASTATIN SODIUM [Concomitant]
     Route: 048
  7. RILMENIDINE PHOSPHATE [Suspect]
     Indication: HYPERTENSION
     Route: 048
  8. ROXITHROMYCIN [Suspect]
     Indication: BRONCHITIS
     Route: 048
     Dates: start: 20040315, end: 20040401
  9. TIANEPTINE SODIUM [Suspect]
     Indication: DEPRESSION
     Route: 048

REACTIONS (2)
  - PEMPHIGOID [None]
  - WHITE BLOOD CELL COUNT INCREASED [None]
